FAERS Safety Report 4944862-8 (Version None)
Quarter: 2006Q1

REPORT INFORMATION
  Report Type: 
  Country: None (occurrence: None)
  Receive Date: 20060127
  Receipt Date: 20050114
  Transmission Date: 20060701
  Serious: Yes (Death, Hospitalization)
  Sender: FDA-Public Use
  Company Number: WAES0501USA02732

PATIENT
  Age: 4 Year
  Sex: Male

DRUGS (6)
  1. ELSPAR [Suspect]
     Indication: ACUTE LYMPHOCYTIC LEUKAEMIA
     Dosage: 10000 IU IV
     Route: 042
     Dates: start: 19730323, end: 19730323
  2. ELSPAR [Suspect]
     Indication: ACUTE LYMPHOCYTIC LEUKAEMIA
     Dosage: 10000 IU IV
     Route: 042
     Dates: start: 19730330, end: 19730330
  3. MERCAPTOPURINE [Concomitant]
  4. METHOTREXATE [Concomitant]
  5. PREDNISOLONE [Concomitant]
  6. VINCRISTINE SULFATE [Concomitant]

REACTIONS (1)
  - PANCREATITIS ACUTE [None]
